FAERS Safety Report 20357858 (Version 3)
Quarter: 2022Q2

REPORT INFORMATION
  Report Type: Report from Study
  Country: DE (occurrence: None)
  Receive Date: 20220120
  Receipt Date: 20220406
  Transmission Date: 20220721
  Serious: Yes (Hospitalization)
  Sender: FDA-Public Use
  Company Number: DE-ROCHE-2999773

PATIENT
  Age: 62 Year
  Sex: Female
  Weight: 90.4 kg

DRUGS (17)
  1. ATEZOLIZUMAB [Suspect]
     Active Substance: ATEZOLIZUMAB
     Indication: Triple negative breast cancer
     Dosage: ON 25/NOV/2021, LAST DOSE WAS ADMINISTERED PRIOR TO AE.
     Route: 041
     Dates: start: 20211014
  2. PACLITAXEL [Suspect]
     Active Substance: PACLITAXEL
     Indication: Triple negative breast cancer
     Dosage: ON 25/NOV/2021, LAST DOSE WAS ADMINISTERED PRIOR TO AE.
     Route: 042
     Dates: start: 20211014
  3. CARBOPLATIN [Suspect]
     Active Substance: CARBOPLATIN
     Indication: Triple negative breast cancer
     Dosage: ON 25/NOV/2021, LAST DOSE WAS ADMINISTERED PRIOR TO AE.
     Route: 042
     Dates: start: 20211014
  4. AMLODIPINE BESYLATE [Concomitant]
     Active Substance: AMLODIPINE BESYLATE
     Dates: start: 20110101
  5. CANDESARTAN [Concomitant]
     Active Substance: CANDESARTAN
     Dates: start: 20110101
  6. ETORICOXIB [Concomitant]
     Active Substance: ETORICOXIB
     Dates: start: 20160101
  7. D MANNOSE [Concomitant]
     Dates: start: 20210101
  8. MCP [Concomitant]
     Active Substance: METOCLOPRAMIDE HYDROCHLORIDE
     Dates: start: 20211016
  9. MAGNESIUM [Concomitant]
     Active Substance: MAGNESIUM
     Dates: start: 20211016
  10. FILGRASTIM [Concomitant]
     Active Substance: FILGRASTIM
     Dosage: 30 MILLION IU
     Dates: start: 20211112, end: 20211112
  11. FILGRASTIM [Concomitant]
     Active Substance: FILGRASTIM
     Dosage: 30 MILLION IU
     Dates: start: 20211115, end: 20211115
  12. FILGRASTIM [Concomitant]
     Active Substance: FILGRASTIM
     Dosage: 30 MILLION IU
     Dates: start: 20211118, end: 20211118
  13. FILGRASTIM [Concomitant]
     Active Substance: FILGRASTIM
     Dosage: 30MIO IE
     Dates: start: 20211211, end: 20211212
  14. VITAMIN D NOS [Concomitant]
     Active Substance: VITAMIN D NOS
     Dosage: 2000 IU
     Dates: start: 20150101
  15. ZOFRAN [Concomitant]
     Active Substance: ONDANSETRON HYDROCHLORIDE
     Dates: start: 20211014, end: 20211125
  16. DEXAMETHASONE [Concomitant]
     Active Substance: DEXAMETHASONE
     Dates: start: 20211014, end: 20211125
  17. DIMETHINDENE [Concomitant]
     Active Substance: DIMETHINDENE
     Dates: start: 20211014, end: 20211125

REACTIONS (1)
  - Febrile neutropenia [Recovered/Resolved]

NARRATIVE: CASE EVENT DATE: 20211209
